FAERS Safety Report 7350218-3 (Version None)
Quarter: 2011Q1

REPORT INFORMATION
  Report Type: 
  Country: None (occurrence: None)
  Receive Date: 20110303
  Receipt Date: 20100119
  Transmission Date: 20110831
  Serious: Yes (Hospitalization, Other)
  Sender: FDA-Public Use
  Company Number: 2010SP004039

PATIENT
  Age: 21 Year
  Sex: Female

DRUGS (10)
  1. CLARITIN [Concomitant]
  2. SYNTHROID [Concomitant]
  3. NAPROXEN [Concomitant]
  4. SUPER B COMPLEX [Concomitant]
  5. IRON [Concomitant]
  6. HYDROCHLOROTHIAZIDE [Concomitant]
  7. PRIVACID [Concomitant]
  8. NUVARING [Suspect]
     Indication: CONTRACEPTION
     Dates: start: 20040501, end: 20040627
  9. PAXIL [Concomitant]
  10. BUSPAR [Concomitant]

REACTIONS (9)
  - ROAD TRAFFIC ACCIDENT [None]
  - PLEURAL EFFUSION [None]
  - SINUS TACHYCARDIA [None]
  - PULMONARY EMBOLISM [None]
  - GALLBLADDER DISORDER [None]
  - PREGNANCY WITH CONTRACEPTIVE DEVICE [None]
  - DRUG EXPOSURE DURING PREGNANCY [None]
  - PNEUMONIA [None]
  - ATELECTASIS [None]
